FAERS Safety Report 12791349 (Version 1)
Quarter: 2016Q3

REPORT INFORMATION
  Report Type: Spontaneous
  Country: US (occurrence: US)
  Receive Date: 20160928
  Receipt Date: 20160928
  Transmission Date: 20161109
  Serious: No
  Sender: FDA-Public Use
  Company Number: None

PATIENT
  Age: 24 Year
  Sex: Male
  Weight: 99 kg

DRUGS (4)
  1. AMPHETAMINE SALTS ER [Suspect]
     Active Substance: AMPHETAMINE ASPARTATE\AMPHETAMINE SULFATE\DEXTROAMPHETAMINE SACCHARATE\DEXTROAMPHETAMINE SULFATE
     Indication: ATTENTION DEFICIT/HYPERACTIVITY DISORDER
     Dosage: OTHER TWICE A DAY ORAL?
     Route: 048
     Dates: start: 20160922, end: 20160927
  2. GENERIC ADDERAL [Concomitant]
  3. L-TYROSINE [Concomitant]
  4. L-THEANINE [Concomitant]
     Active Substance: DIETARY SUPPLEMENT

REACTIONS (4)
  - Depression [None]
  - Chest pain [None]
  - Drug effect decreased [None]
  - Disturbance in attention [None]

NARRATIVE: CASE EVENT DATE: 20160922
